FAERS Safety Report 7780675-X (Version None)
Quarter: 2011Q3

REPORT INFORMATION
  Report Type: 
  Country: None (occurrence: None)
  Receive Date: 20110927
  Receipt Date: 20110311
  Transmission Date: 20111222
  Serious: No
  Sender: FDA-Public Use
  Company Number: US-BRISTOL-MYERS SQUIBB COMPANY-15603517

PATIENT
  Age: 56 Year
  Sex: Male

DRUGS (10)
  1. DOXEPIN [Concomitant]
  2. DILTIAZEM HCL [Concomitant]
  3. MULTAQ [Concomitant]
  4. ASPIRIN [Concomitant]
  5. ZYRTEC [Concomitant]
  6. AVAPRO [Suspect]
     Dosage: PRESCRIBED WITH 150 MG TWICE DAILY
  7. NEXIUM [Concomitant]
  8. CENTRUM SILVER [Concomitant]
  9. VITAMIN E [Concomitant]
  10. HYDROXYZINE HCL [Concomitant]

REACTIONS (1)
  - MEDICATION ERROR [None]
